FAERS Safety Report 26071697 (Version 1)
Quarter: 2025Q4

REPORT INFORMATION
  Report Type: Spontaneous
  Country: EU (occurrence: EU)
  Receive Date: 20251120
  Receipt Date: 20251120
  Transmission Date: 20260119
  Serious: Yes (Death, Other)
  Sender: BRISTOL-MYERS SQUIBB COMPANY
  Company Number: EU-BRISTOL-MYERS SQUIBB COMPANY-2025-155481

PATIENT
  Age: 22 Year
  Sex: Male

DRUGS (1)
  1. NIVOLUMAB [Suspect]
     Active Substance: NIVOLUMAB
     Indication: Xeroderma pigmentosum
     Dates: start: 202004, end: 202012

REACTIONS (7)
  - Obliterative bronchiolitis [Recovering/Resolving]
  - Type 1 diabetes mellitus [Recovering/Resolving]
  - Pneumonitis [Unknown]
  - Swelling [Unknown]
  - Chronic graft versus host disease [Fatal]
  - Off label use [Unknown]
  - Pneumonia [Fatal]

NARRATIVE: CASE EVENT DATE: 20201001
